FAERS Safety Report 6449375-2 (Version None)
Quarter: 2009Q4

REPORT INFORMATION
  Report Type: 
  Country: None (occurrence: None)
  Receive Date: 20091120
  Receipt Date: 20081202
  Transmission Date: 20100525
  Serious: Yes (Hospitalization, Other)
  Sender: FDA-Public Use
  Company Number: US-AMGEN-QUU317515

PATIENT
  Sex: Female
  Weight: 61.3 kg

DRUGS (9)
  1. ENBREL [Suspect]
     Indication: RHEUMATOID ARTHRITIS
     Route: 058
     Dates: start: 20050712, end: 20080720
  2. SULFASALAZINE [Suspect]
     Indication: DRUG USE FOR UNKNOWN INDICATION
     Dates: start: 20061201, end: 20080720
  3. IBUPROFEN [Concomitant]
     Dates: end: 20080720
  4. DARVOCET-N 100 [Concomitant]
     Dates: end: 20080720
  5. VICODIN [Concomitant]
     Dates: end: 20080720
  6. LEXAPRO [Concomitant]
     Dates: start: 20070101, end: 20080720
  7. BONIVA [Concomitant]
     Dates: end: 20080101
  8. ALPRAZOLAM [Concomitant]
  9. EVISTA [Concomitant]

REACTIONS (5)
  - ANXIETY [None]
  - APLASTIC ANAEMIA [None]
  - DEPRESSION [None]
  - HAEMORRHOIDS [None]
  - OSTEOPENIA [None]
